FAERS Safety Report 5889698-9 (Version None)
Quarter: 2008Q3

REPORT INFORMATION
  Report Type: 
  Country: None (occurrence: None)
  Receive Date: 20080919
  Receipt Date: 20080910
  Transmission Date: 20090109
  Serious: Yes (Life-Threatening)
  Sender: FDA-Public Use
  Company Number: US-KINGPHARMUSA00001-K200801063

PATIENT

DRUGS (5)
  1. ALTACE [Suspect]
     Dosage: 5 MG, QD
     Route: 048
  2. ACETYL SALICYLIC ACID COMPOUND TAB [Concomitant]
     Dosage: 100 MG, UNK
     Route: 048
  3. BISOPROLOL FUMARATE [Concomitant]
     Dosage: 1.25 MG, UNK
     Route: 048
  4. HYDROCHLOROTHIAZIDE [Concomitant]
     Dosage: 25 MG, UNK
     Route: 048
  5. SIMVASTATIN [Concomitant]
     Dosage: 20 MG, UNK
     Route: 048

REACTIONS (13)
  - ANAPHYLACTIC REACTION [None]
  - CIRCULATORY COLLAPSE [None]
  - DYSPNOEA [None]
  - HYPOTENSION [None]
  - LOSS OF CONSCIOUSNESS [None]
  - MALAISE [None]
  - OEDEMA PERIPHERAL [None]
  - POTENTIATING DRUG INTERACTION [None]
  - PULSE ABNORMAL [None]
  - RASH GENERALISED [None]
  - SNAKE BITE [None]
  - SWOLLEN TONGUE [None]
  - URTICARIA [None]
